FAERS Safety Report 24011738 (Version 1)
Quarter: 2024Q2

REPORT INFORMATION
  Report Type: Other
  Country: NL (occurrence: NL)
  Receive Date: 20240625
  Receipt Date: 20240625
  Transmission Date: 20240716
  Serious: Yes (Hospitalization)
  Sender: FDA-Public Use
  Company Number: NL-B.Braun Medical Inc.-2158507

PATIENT
  Age: 19 Year
  Sex: Female

DRUGS (3)
  1. BUPIVACAINE HYDROCHLORIDE [Suspect]
     Active Substance: BUPIVACAINE HYDROCHLORIDE\BUPIVACAINE HYDROCHLORIDE ANHYDROUS
     Indication: Spinal anaesthesia
  2. DIAMORPHINE [Suspect]
     Active Substance: DIAMORPHINE
  3. ALFENTANIL [Suspect]
     Active Substance: ALFENTANIL

REACTIONS (2)
  - Epidural lipomatosis [Unknown]
  - Maternal exposure during delivery [Unknown]
